FAERS Safety Report 5314505-2 (Version None)
Quarter: 2007Q2

REPORT INFORMATION
  Report Type: 
  Country: None (occurrence: None)
  Receive Date: 20070502
  Receipt Date: 20070501
  Transmission Date: 20071010
  Serious: Yes (Hospitalization)
  Sender: FDA-Public Use
  Company Number: US-BRISTOL-MYERS SQUIBB COMPANY-13765656

PATIENT
  Age: 75 Year
  Sex: Male

DRUGS (16)
  1. COUMADIN [Suspect]
     Route: 048
  2. DILTIAZEM HCL [Concomitant]
  3. ZETIA [Concomitant]
  4. TEMODAR [Concomitant]
  5. PROTONIX [Concomitant]
  6. MUCOMYST [Concomitant]
  7. LEVEMIR [Concomitant]
  8. KEPPRA [Concomitant]
  9. DILANTIN [Concomitant]
  10. DEXAMETHASONE 0.5MG TAB [Concomitant]
  11. DULCOLAX [Concomitant]
  12. DOCUSATE [Concomitant]
  13. BACTRIM DS [Concomitant]
  14. FLONASE [Concomitant]
  15. ZOFRAN [Concomitant]
  16. LORAZEPAM [Concomitant]

REACTIONS (2)
  - FALL [None]
  - INTERNATIONAL NORMALISED RATIO FLUCTUATION [None]
